FAERS Safety Report 10471736 (Version 1)
Quarter: 2014Q3

REPORT INFORMATION
  Report Type: Spontaneous
  Country: US (occurrence: US)
  Receive Date: 20140923
  Receipt Date: 20140923
  Transmission Date: 20150326
  Serious: Yes (Hospitalization)
  Sender: FDA-Public Use
  Company Number: US-B.I. PHARMACEUTICALS,INC./RIDGEFIELD-2014-BI-44361BP

PATIENT
  Age: 86 Year
  Sex: Male

DRUGS (1)
  1. GILOTRIF [Suspect]
     Active Substance: AFATINIB
     Indication: NON-SMALL CELL LUNG CANCER STAGE IV
     Dosage: 30 MG
     Route: 048
     Dates: start: 201401, end: 2014

REACTIONS (3)
  - Ammonia increased [Not Recovered/Not Resolved]
  - Urinary tract infection [Recovered/Resolved]
  - Mental status changes [Unknown]

NARRATIVE: CASE EVENT DATE: 201409
